FAERS Safety Report 4510589-X (Version None)
Quarter: 2004Q4

REPORT INFORMATION
  Report Type: 
  Country: None (occurrence: None)
  Receive Date: 20041124
  Receipt Date: 20041117
  Transmission Date: 20050328
  Serious: Yes (Life-Threatening, Other)
  Sender: FDA-Public Use
  Company Number: AU-ABBOTT-04P-008-0280883-00

PATIENT
  Sex: Male

DRUGS (3)
  1. EPILIM [Suspect]
     Indication: EPILEPSY
  2. LAMOTRIGINE [Interacting]
     Indication: EPILEPSY
     Route: 048
     Dates: start: 20040416, end: 20040430
  3. CARBAMAZEPINE [Concomitant]
     Indication: EPILEPSY
     Route: 048

REACTIONS (13)
  - ARTHRALGIA [None]
  - CHILLS [None]
  - DIARRHOEA [None]
  - DRUG INTERACTION [None]
  - HEADACHE [None]
  - HEPATIC FUNCTION ABNORMAL [None]
  - MYALGIA [None]
  - NAUSEA [None]
  - PNEUMONIA [None]
  - RASH MACULO-PAPULAR [None]
  - RESPIRATORY FAILURE [None]
  - TACHYCARDIA [None]
  - VOMITING [None]
